FAERS Safety Report 7425692-4 (Version None)
Quarter: 2011Q2

REPORT INFORMATION
  Report Type: 
  Country: None (occurrence: None)
  Receive Date: 20110420
  Receipt Date: 20110406
  Transmission Date: 20111010
  Serious: Yes (Hospitalization, Other)
  Sender: FDA-Public Use
  Company Number: US-ELI_LILLY_AND_COMPANY-US201012005018

PATIENT
  Sex: Female

DRUGS (12)
  1. CARVEDILOL [Concomitant]
     Dosage: 12.5 MG, BID
  2. ARICEPT [Concomitant]
     Dosage: 10 MG, QD
  3. VITAMIN D [Concomitant]
     Dosage: 2000 IU, QD
  4. NAMENDA [Concomitant]
     Dosage: 10 MG, BID
  5. CALCIUM [Concomitant]
     Dosage: 600 MG, QD
  6. FISH OIL [Concomitant]
  7. FORTEO [Suspect]
     Indication: OSTEOPOROSIS
     Dosage: 20 UG, QD
     Route: 065
     Dates: start: 20100923
  8. OMEPRAZOLE [Concomitant]
     Dosage: 40 MG, QD
  9. AVAPRO [Concomitant]
     Dosage: 300 MG, QD
  10. ASPIRIN [Concomitant]
     Dosage: 81 MG, BID
  11. COD-LIVER OIL [Concomitant]
  12. LOVAZA [Concomitant]

REACTIONS (3)
  - HYPERTENSION [None]
  - FALL [None]
  - ORTHOSTATIC HYPOTENSION [None]
